FAERS Safety Report 12566212 (Version 5)
Quarter: 2017Q2

REPORT INFORMATION
  Report Type: Report from Study
  Country: US (occurrence: US)
  Receive Date: 20160718
  Receipt Date: 20170512
  Transmission Date: 20170830
  Serious: Yes (Hospitalization)
  Sender: FDA-Public Use
  Company Number: US-SA-2016SA103165

PATIENT
  Age: 33 Year
  Sex: Female
  Weight: 77.11 kg

DRUGS (7)
  1. BACLOFEN. [Concomitant]
     Active Substance: BACLOFEN
     Indication: MUSCLE SPASTICITY
  2. GABAPENTIN. [Concomitant]
     Active Substance: GABAPENTIN
     Indication: NEURALGIA
  3. LEMTRADA [Suspect]
     Active Substance: ALEMTUZUMAB
     Indication: RELAPSING-REMITTING MULTIPLE SCLEROSIS
     Route: 041
     Dates: start: 20160523, end: 20160527
  4. NUVIGIL [Concomitant]
     Active Substance: ARMODAFINIL
     Indication: FATIGUE
     Dosage: QAM
  5. RAPAFLO [Concomitant]
     Active Substance: SILODOSIN
     Indication: URINARY RETENTION
  6. VITAMIN D [Concomitant]
     Active Substance: CHOLECALCIFEROL
     Indication: VITAMIN D DEFICIENCY
     Dosage: DOSE:6000 UNIT(S)
  7. AMANTADINE. [Concomitant]
     Active Substance: AMANTADINE HYDROCHLORIDE
     Indication: FATIGUE

REACTIONS (28)
  - Pneumonia [Recovered/Resolved]
  - Candida test positive [Recovered/Resolved]
  - Chest discomfort [Not Recovered/Not Resolved]
  - Weight increased [Not Recovered/Not Resolved]
  - Musculoskeletal pain [Not Recovered/Not Resolved]
  - Headache [Not Recovered/Not Resolved]
  - Blood glucose increased [Not Recovered/Not Resolved]
  - Pyrexia [Not Recovered/Not Resolved]
  - T-lymphocyte count decreased [Unknown]
  - Ill-defined disorder [Unknown]
  - Tachycardia [Recovered/Resolved]
  - Painful respiration [Recovered/Resolved]
  - Alopecia [Not Recovered/Not Resolved]
  - Hyperhidrosis [Unknown]
  - Condition aggravated [Recovered/Resolved]
  - Computerised tomogram abnormal [Recovered/Resolved]
  - Back pain [Not Recovered/Not Resolved]
  - Fatigue [Recovered/Resolved]
  - Heart rate increased [Unknown]
  - Nausea [Unknown]
  - Hypothyroidism [Not Recovered/Not Resolved]
  - Pleurisy [Not Recovered/Not Resolved]
  - B-lymphocyte count decreased [Unknown]
  - Urinary tract infection [Unknown]
  - Nausea [Recovered/Resolved]
  - Pyrexia [Recovered/Resolved]
  - Diarrhoea [Recovering/Resolving]
  - Asthenia [Recovered/Resolved]

NARRATIVE: CASE EVENT DATE: 2016
